FAERS Safety Report 21711490 (Version 1)
Quarter: 2022Q4

REPORT INFORMATION
  Report Type: Spontaneous
  Country: US (occurrence: US)
  Receive Date: 20221212
  Receipt Date: 20221212
  Transmission Date: 20230112
  Serious: No
  Sender: FDA-Public Use
  Company Number: US-BAUSCH-BL-2022-026858

PATIENT
  Sex: Female

DRUGS (3)
  1. XIFAXAN [Suspect]
     Active Substance: RIFAXIMIN
     Indication: Hepatic cirrhosis
     Route: 048
  2. LACTULOSE [Suspect]
     Active Substance: LACTULOSE
     Indication: Hepatic cirrhosis
     Dosage: AS DIRECTED
     Route: 048
  3. SODIUM CHLORITE [Concomitant]
     Active Substance: SODIUM CHLORITE
     Indication: Product used for unknown indication
     Dosage: NMS (SODIUM CHLORITE)
     Route: 048

REACTIONS (1)
  - Rectal discharge [Recovered/Resolved]
